FAERS Safety Report 21452841 (Version 1)
Quarter: 2022Q4

REPORT INFORMATION
  Report Type: Other
  Country: GB (occurrence: None)
  Receive Date: 20221013
  Receipt Date: 20221013
  Transmission Date: 20230113
  Serious: Yes (Hospitalization)
  Sender: FDA-Public Use
  Company Number: GB-ROCHE-2564298

PATIENT
  Sex: Female

DRUGS (2)
  1. TOCILIZUMAB [Suspect]
     Active Substance: TOCILIZUMAB
     Indication: Rheumatoid arthritis
     Route: 058
     Dates: start: 201911
  2. TOCILIZUMAB [Suspect]
     Active Substance: TOCILIZUMAB
     Route: 058
     Dates: start: 2019

REACTIONS (6)
  - Cellulitis [Unknown]
  - Localised infection [Unknown]
  - Lymphoedema [Unknown]
  - Wound infection [Unknown]
  - Arthralgia [Unknown]
  - SARS-CoV-2 test positive [Unknown]
